FAERS Safety Report 9827256 (Version 1)
Quarter: 2014Q1

REPORT INFORMATION
  Report Type: Spontaneous
  Country: US (occurrence: US)
  Receive Date: 20140117
  Receipt Date: 20140117
  Transmission Date: 20141002
  Serious: No
  Sender: FDA-Public Use
  Company Number: US-BRISTOL-MYERS SQUIBB COMPANY-19791979

PATIENT
  Age: 72 Year
  Sex: Female

DRUGS (1)
  1. YERVOY [Suspect]
     Indication: METASTATIC MALIGNANT MELANOMA
     Dosage: 1ST DOSE =28JUN13.?2ND DOSE=29JUL13?3RD DOSE=0CT13.
     Route: 042
     Dates: start: 20130628

REACTIONS (2)
  - Dyspnoea [Unknown]
  - Diarrhoea [Unknown]
